FAERS Safety Report 4510333-6 (Version None)
Quarter: 2004Q4

REPORT INFORMATION
  Report Type: 
  Country: None (occurrence: None)
  Receive Date: 20041119
  Receipt Date: 20041109
  Transmission Date: 20050328
  Serious: Yes (Life-Threatening, Other)
  Sender: FDA-Public Use
  Company Number: JP-2004-034734

PATIENT
  Age: 80 Year
  Sex: Female

DRUGS (1)
  1. PROSCOPE 300        (IOPROMIDE) [Suspect]
     Dosage: INTRAVENOUS
     Route: 042
     Dates: start: 20041102, end: 20041102

REACTIONS (3)
  - ATRIAL FIBRILLATION [None]
  - CARDIAC ARREST [None]
  - LOSS OF CONSCIOUSNESS [None]
